FAERS Safety Report 7386263-1 (Version None)
Quarter: 2011Q1

REPORT INFORMATION
  Report Type: 
  Country: None (occurrence: None)
  Receive Date: 20110331
  Receipt Date: 20110324
  Transmission Date: 20110831
  Serious: Yes (Hospitalization)
  Sender: FDA-Public Use
  Company Number: US-B.I. PHARMACEUTICALS,INC./RIDGEFIELD-2011-BP-09285BP

PATIENT
  Sex: Male

DRUGS (1)
  1. PRADAXA [Suspect]
     Indication: ANTIPHOSPHOLIPID ANTIBODIES POSITIVE
     Route: 048
     Dates: start: 20110301

REACTIONS (4)
  - PAIN IN EXTREMITY [None]
  - DIZZINESS [None]
  - TROPONIN INCREASED [None]
  - MUSCULOSKELETAL PAIN [None]
